FAERS Safety Report 9285362 (Version 1)
Quarter: 2013Q2

REPORT INFORMATION
  Report Type: Spontaneous
  Country: US (occurrence: US)
  Receive Date: 20130513
  Receipt Date: 20130513
  Transmission Date: 20140414
  Serious: Yes (Other)
  Sender: FDA-Public Use
  Company Number: US-BRISTOL-MYERS SQUIBB COMPANY-18857862

PATIENT
  Age: 69 Year
  Sex: Female
  Weight: 74.37 kg

DRUGS (5)
  1. ABATACEPT SUBQ INJECTION 125MG/ML [Suspect]
     Indication: RHEUMATOID ARTHRITIS
     Dosage: LAST INJECTION :21-APR-2012
     Route: 058
     Dates: start: 201201
  2. METHOTREXATE [Concomitant]
     Indication: PAIN
  3. OXYCODONE [Concomitant]
     Indication: PAIN
  4. LEXAPRO [Concomitant]
  5. PREDNISONE [Concomitant]

REACTIONS (6)
  - Back disorder [Unknown]
  - Nasal disorder [Unknown]
  - Drug ineffective [Unknown]
  - Depression [Unknown]
  - Weight fluctuation [Unknown]
  - Hypersensitivity [Unknown]
